FAERS Safety Report 15992805 (Version 2)
Quarter: 2019Q1

REPORT INFORMATION
  Report Type: Report from Study
  Country: IT (occurrence: IT)
  Receive Date: 20190221
  Receipt Date: 20190321
  Transmission Date: 20190418
  Serious: Yes (Other)
  Sender: FDA-Public Use
  Company Number: IT-JAZZ-2019-IT-001643

PATIENT
  Age: 54 Year
  Sex: Female
  Weight: 48 kg

DRUGS (15)
  1. PAROXETINE. [Concomitant]
     Active Substance: PAROXETINE
     Indication: DEPRESSION
     Dosage: 20 ?G, QD
     Route: 048
     Dates: start: 20181205, end: 20190107
  2. MEROPENEM. [Concomitant]
     Active Substance: MEROPENEM
     Indication: PRODUCT USED FOR UNKNOWN INDICATION
     Dosage: 2 G X 3, QD
     Route: 042
     Dates: start: 20181226, end: 20190102
  3. VYXEOS [Suspect]
     Active Substance: CYTARABINE\DAUNORUBICIN
     Indication: MYELODYSPLASTIC SYNDROME
     Dosage: DAUNORUBICIN 66 MG, CYTARABINE 150 MG DAY 1, 3 AND 5
     Dates: start: 20181214, end: 20181218
  4. ACICLOVIR [Concomitant]
     Active Substance: ACYCLOVIR
     Indication: PROPHYLAXIS
     Dosage: 400 ?G, BID
     Route: 048
     Dates: start: 20181213
  5. RABEPRAZOLE [Concomitant]
     Active Substance: RABEPRAZOLE
     Indication: PROPHYLAXIS
     Dosage: 30 ?G, QD
     Route: 048
     Dates: start: 20181205
  6. G-CSF [Concomitant]
     Active Substance: GRANULOCYTE COLONY-STIMULATING FACTOR NOS
     Indication: NEUTROPENIA
     Dosage: 1 ?G, QD
     Route: 058
     Dates: start: 20181212, end: 20190103
  7. MOXIFLOXACIN. [Concomitant]
     Active Substance: MOXIFLOXACIN
     Indication: PROPHYLAXIS
     Dosage: 400 ?G, QD
     Route: 048
     Dates: start: 20181211
  8. LANSOPRAZOLE. [Concomitant]
     Active Substance: LANSOPRAZOLE
     Indication: PROPHYLAXIS
     Dosage: 30 ?G, QD
     Dates: start: 20181204
  9. G-CSF [Concomitant]
     Active Substance: GRANULOCYTE COLONY-STIMULATING FACTOR NOS
     Dosage: 1 ?G, UNK
     Dates: start: 20190118
  10. MOXIFLOXACIN. [Concomitant]
     Active Substance: MOXIFLOXACIN
     Dosage: 400 ?G, QD
     Route: 048
     Dates: start: 20190114
  11. DAPTOMYCINE [Concomitant]
     Active Substance: DAPTOMYCIN
     Indication: PRODUCT USED FOR UNKNOWN INDICATION
     Dosage: 300 ?G, QD
     Route: 042
     Dates: start: 20181229, end: 20190102
  12. PREDNISOLONE. [Concomitant]
     Active Substance: PREDNISOLONE
     Indication: PNEUMONIA
     Dosage: 10 ?G, QD
     Route: 048
     Dates: start: 20190111, end: 20190125
  13. FLUCONAZOLE. [Concomitant]
     Active Substance: FLUCONAZOLE
     Indication: PROPHYLAXIS
     Dosage: 300 ?G, QD
     Route: 048
     Dates: start: 20181204, end: 20190120
  14. POSACONAZOLE [Concomitant]
     Active Substance: POSACONAZOLE
     Indication: PROPHYLAXIS
     Dosage: 300 ?G, QD
     Route: 048
     Dates: start: 20181204
  15. COTRIMOXAZOLE [Concomitant]
     Active Substance: SULFAMETHOXAZOLE\TRIMETHOPRIM
     Indication: PROPHYLAXIS
     Dosage: 800/160 ?G, UNK
     Route: 048
     Dates: start: 20181204

REACTIONS (5)
  - Pneumonia [Recovered/Resolved]
  - Gastrointestinal inflammation [Recovered/Resolved]
  - Amylase increased [Recovered/Resolved]
  - Febrile neutropenia [Recovered/Resolved]
  - Lipase increased [Recovered/Resolved]

NARRATIVE: CASE EVENT DATE: 20181224
